FAERS Safety Report 8511522-6 (Version None)
Quarter: 2012Q3

REPORT INFORMATION
  Report Type: 
  Country: None (occurrence: None)
  Receive Date: 20120716
  Receipt Date: 20120710
  Transmission Date: 20120928
  Serious: Yes (Other)
  Sender: FDA-Public Use
  Company Number: VE-PFIZER INC-2011247596

PATIENT
  Age: 89 Year
  Sex: Female

DRUGS (9)
  1. ZOLOFT [Suspect]
     Indication: DEPRESSION
     Dosage: 50 MG, 1X/DAY
     Route: 048
     Dates: start: 20030101
  2. ADALAT [Concomitant]
     Indication: HYPERTENSION
     Dosage: 60 MG, 1X/DAY
     Route: 048
  3. OMEPRAZOLE [Concomitant]
     Indication: PROPHYLAXIS
     Dosage: 20 MG, 1X/DAY
     Route: 048
  4. IRBESARTAN [Concomitant]
     Indication: HYPERTENSION
     Dosage: 300 MG, 1X/DAY
     Route: 048
  5. ALISKIREN [Concomitant]
     Indication: HYPERTENSION
     Dosage: 150 MG, 1X/DAY
     Route: 048
  6. CATAPRES [Concomitant]
     Indication: HYPERTENSION
     Dosage: 0.150 MG, 3X/DAY
     Route: 048
  7. ATRIMON [Concomitant]
     Indication: INSOMNIA
     Dosage: 10 MG, 1X/DAY
     Route: 048
  8. PLAVIX [Concomitant]
     Indication: PROPHYLAXIS
     Dosage: 75 MG, 1X/DAY
     Route: 048
  9. LIPITOR [Concomitant]
     Indication: HYPERCHOLESTEROLAEMIA
     Dosage: 40 MG, 1X/DAY
     Route: 048

REACTIONS (1)
  - SENILE DEMENTIA [None]
